FAERS Safety Report 21885250 (Version 1)
Quarter: 2023Q1

REPORT INFORMATION
  Report Type: Spontaneous
  Country: US (occurrence: None)
  Receive Date: 20230118
  Receipt Date: 20230118
  Transmission Date: 20230418
  Serious: No
  Sender: FDA-Public Use
  Company Number: None

PATIENT
  Age: 74 Year
  Sex: Male
  Weight: 78.38 kg

DRUGS (23)
  1. TEMOZOLOMIDE [Suspect]
     Active Substance: TEMOZOLOMIDE
     Indication: Brain neoplasm malignant
     Dosage: FREQUENCY : DAILY;?
     Route: 048
     Dates: start: 202209
  2. AMLODIPINE [Concomitant]
     Active Substance: AMLODIPINE BESYLATE
  3. ATORVASTATIN [Concomitant]
     Active Substance: ATORVASTATIN
  4. AZELASTINE [Concomitant]
     Active Substance: AZELASTINE
  5. BACTRIM DS [Concomitant]
     Active Substance: SULFAMETHOXAZOLE\TRIMETHOPRIM
  6. CHLOROPHYLL [Concomitant]
  7. DEPAKOTE ER [Concomitant]
     Active Substance: DIVALPROEX SODIUM
  8. ELIQUIS [Concomitant]
     Active Substance: APIXABAN
  9. ESCITALOPRAM [Concomitant]
     Active Substance: ESCITALOPRAM OXALATE
  10. FINASTERIDE [Concomitant]
     Active Substance: FINASTERIDE
  11. IRON [Concomitant]
     Active Substance: IRON
  12. KETOCONAZOLE [Concomitant]
     Active Substance: KETOCONAZOLE
  13. LORAZEPAM [Concomitant]
     Active Substance: LORAZEPAM
  14. LOSARTAN [Concomitant]
     Active Substance: LOSARTAN
  15. LUNESTA [Concomitant]
     Active Substance: ESZOPICLONE
  16. METFORMIN [Concomitant]
     Active Substance: METFORMIN HYDROCHLORIDE
  17. OMEPRAZOLE [Concomitant]
     Active Substance: OMEPRAZOLE
  18. ONDANSETRON [Concomitant]
     Active Substance: ONDANSETRON
  19. OXCARBAEPINE [Concomitant]
  20. PROCHLORPERAZINE [Concomitant]
     Active Substance: PROCHLORPERAZINE
  21. QUETIAPINE [Concomitant]
     Active Substance: QUETIAPINE
  22. TRETINOIN [Concomitant]
     Active Substance: TRETINOIN
  23. VITAMIN B12 [Concomitant]
     Active Substance: CYANOCOBALAMIN

REACTIONS (2)
  - Generalised tonic-clonic seizure [None]
  - Cognitive disorder [None]
